FAERS Safety Report 11597479 (Version 1)
Quarter: 2015Q4

REPORT INFORMATION
  Report Type: Report from Study
  Country: CA (occurrence: CA)
  Receive Date: 20151006
  Receipt Date: 20151006
  Transmission Date: 20160304
  Serious: Yes (Disabling, Other)
  Sender: FDA-Public Use
  Company Number: CA-ABBVIE-15P-028-1474807-00

PATIENT
  Sex: Male
  Weight: 79.9 kg

DRUGS (7)
  1. HOLKIRA PAK [Suspect]
     Active Substance: DASABUVIR\OMBITASVIR\PARITAPREVIR\RITONAVIR
     Dosage: ONE WEEK TREATMENT PACKS
     Route: 048
  2. SALBUTAMOL [Concomitant]
     Active Substance: ALBUTEROL
     Indication: PRODUCT USED FOR UNKNOWN INDICATION
  3. HOLKIRA PAK [Suspect]
     Active Substance: DASABUVIR\OMBITASVIR\PARITAPREVIR\RITONAVIR
     Indication: HEPATITIS C
     Dosage: ONE WEEK TREATMENT PACKS
     Route: 048
     Dates: start: 20150827
  4. MODERIBA [Suspect]
     Active Substance: RIBAVIRIN
     Indication: HEPATITIS C
     Route: 048
     Dates: start: 20150827
  5. MODERIBA [Suspect]
     Active Substance: RIBAVIRIN
     Route: 048
  6. HOLKIRA PAK [Suspect]
     Active Substance: DASABUVIR\OMBITASVIR\PARITAPREVIR\RITONAVIR
     Dosage: UNSPECIFIED DOSE
     Route: 048
  7. MODERIBA [Suspect]
     Active Substance: RIBAVIRIN
     Dosage: UNSPECIFIED DOSE
     Route: 048

REACTIONS (5)
  - Inappropriate schedule of drug administration [Unknown]
  - Loss of consciousness [Unknown]
  - Foot fracture [Unknown]
  - Cerebral disorder [Unknown]
  - Injury [Unknown]
